FAERS Safety Report 9984238 (Version 2)
Quarter: 2014Q2

REPORT INFORMATION
  Report Type: Spontaneous
  Country: US (occurrence: US)
  Receive Date: 20140307
  Receipt Date: 20140410
  Transmission Date: 20141212
  Serious: Yes (Other)
  Sender: FDA-Public Use
  Company Number: US-PFIZER INC-2014062191

PATIENT
  Age: 53 Year
  Sex: Female
  Weight: 70.3 kg

DRUGS (1)
  1. CELEBREX [Suspect]
     Indication: PAIN
     Dosage: 200 MG, 1X/DAY
     Route: 048

REACTIONS (3)
  - Brain neoplasm malignant [Unknown]
  - Amnesia [Unknown]
  - Gait disturbance [Unknown]
